FAERS Safety Report 19922521 (Version 3)
Quarter: 2022Q1

REPORT INFORMATION
  Report Type: Spontaneous
  Country: PE (occurrence: PE)
  Receive Date: 20211005
  Receipt Date: 20220310
  Transmission Date: 20220423
  Serious: Yes (Death, Other)
  Sender: FDA-Public Use
  Company Number: PE-009507513-2106PER006077

PATIENT
  Age: 87 Year
  Sex: Male

DRUGS (4)
  1. KEYTRUDA [Suspect]
     Active Substance: PEMBROLIZUMAB
     Indication: Colon cancer stage IV
     Dosage: 2 VIALS OF 100MG (200MG) EVERY 4 WEEKS
     Route: 042
     Dates: start: 20210427, end: 20210518
  2. LOSARTAN [Concomitant]
     Active Substance: LOSARTAN
     Indication: Blood pressure increased
     Dosage: UNK
     Dates: end: 202108
  3. CLOPIDOGREL [Concomitant]
     Active Substance: CLOPIDOGREL BISULFATE
     Indication: Myocardial infarction
     Dosage: UNK
     Dates: end: 2021
  4. ATORVASTATIN [Concomitant]
     Active Substance: ATORVASTATIN
     Indication: Prophylaxis
     Dosage: UNK, 1 TIME PER DAY

REACTIONS (14)
  - Malignant neoplasm progression [Fatal]
  - Tumour haemorrhage [Unknown]
  - Hypothyroidism [Unknown]
  - Anaemia [Not Recovered/Not Resolved]
  - Arteriosclerosis [Unknown]
  - Peripheral artery thrombosis [Unknown]
  - Atelectasis [Unknown]
  - Peripheral artery aneurysm [Unknown]
  - Benign prostatic hyperplasia [Unknown]
  - Blood albumin decreased [Recovered/Resolved]
  - Gait disturbance [Unknown]
  - Fluid retention [Unknown]
  - Asthenia [Unknown]
  - Pain [Unknown]

NARRATIVE: CASE EVENT DATE: 20210101
